FAERS Safety Report 7655475-1 (Version None)
Quarter: 2011Q3

REPORT INFORMATION
  Report Type: 
  Country: None (occurrence: None)
  Receive Date: 20110804
  Receipt Date: 20110726
  Transmission Date: 20111222
  Serious: Yes (Other)
  Sender: FDA-Public Use
  Company Number: JP-ASTELLAS-2011JP004650

PATIENT
  Sex: Female
  Weight: 55 kg

DRUGS (13)
  1. WASSER V AVENTIS [Concomitant]
     Indication: STOMATITIS
     Dosage: 1 G, TID
     Route: 048
     Dates: start: 20100617
  2. CAMOSTATE [Concomitant]
     Indication: PANCREATITIS CHRONIC
     Dosage: 200 MG, TID
     Route: 048
     Dates: start: 20100212
  3. VESICARE [Suspect]
     Indication: NOCTURIA
     Dosage: 5 MG, UID/QD
     Route: 048
     Dates: start: 20100408, end: 20100409
  4. ONEALFA [Concomitant]
     Indication: OSTEOPOROSIS
     Dosage: 0.5 UG, UID/QD
     Route: 048
     Dates: start: 20100617
  5. PROMAC [Concomitant]
     Indication: DYSGEUSIA
     Dosage: 75 MG, BID
     Route: 048
     Dates: start: 20100617
  6. NIZATIDINE [Concomitant]
     Indication: PANCREATITIS CHRONIC
  7. ASPARA [Concomitant]
     Indication: OSTEOPOROSIS
     Dosage: 200 MG, UID/QD
     Route: 048
     Dates: start: 20100617
  8. VESICARE [Suspect]
     Indication: HYPERTONIC BLADDER
     Dosage: 5 MG, UID/QD
     Route: 048
     Dates: start: 20100401, end: 20100412
  9. VESICARE [Suspect]
     Dosage: 5 MG, UID/QD
     Route: 048
     Dates: start: 20110705, end: 20110707
  10. BERIZYM [Concomitant]
     Indication: PANCREATITIS CHRONIC
     Dosage: 2 G, TID
     Route: 048
     Dates: start: 20100212
  11. VESICARE [Suspect]
     Dosage: 5 MG, UID/QD
     Route: 048
     Dates: start: 20101102, end: 20101103
  12. NIZATIDINE [Concomitant]
     Indication: DRY MOUTH
     Dosage: 150 MG, BID
     Route: 048
     Dates: start: 20100617
  13. PROMAC [Concomitant]
     Indication: PANCREATITIS CHRONIC

REACTIONS (3)
  - DRY MOUTH [None]
  - DECREASED APPETITE [None]
  - ABDOMINAL DISCOMFORT [None]
